FAERS Safety Report 9795959 (Version 6)
Quarter: 2014Q2

REPORT INFORMATION
  Report Type: Report from Study
  Country: US (occurrence: US)
  Receive Date: 20140103
  Receipt Date: 20140519
  Transmission Date: 20141212
  Serious: Yes (Hospitalization)
  Sender: FDA-Public Use
  Company Number: US-PFIZER INC-2013331660

PATIENT
  Age: 77 Year
  Sex: Female
  Weight: 89.3 kg

DRUGS (24)
  1. BLINDED CELECOXIB [Suspect]
     Indication: OSTEOARTHRITIS
     Dosage: UNK, 3X/DAY
     Route: 048
     Dates: start: 20100420, end: 20111101
  2. BLINDED IBUPROFEN [Suspect]
     Indication: OSTEOARTHRITIS
     Dosage: UNK, 3X/DAY
     Route: 048
     Dates: start: 20100420, end: 20111101
  3. BLINDED IBUPROFEN [Suspect]
     Indication: OSTEOARTHRITIS
     Dosage: UNK, 3X/DAY
     Route: 048
     Dates: start: 20100420, end: 20111101
  4. BLINDED IBUPROFEN [Suspect]
     Indication: OSTEOARTHRITIS
     Dosage: UNK, 3X/DAY
     Route: 048
     Dates: start: 20100420, end: 20111101
  5. BLINDED NAPROXEN [Suspect]
     Indication: OSTEOARTHRITIS
     Dosage: UNK, 3X/DAY
     Route: 048
     Dates: start: 20100420, end: 20111101
  6. BLINDED NAPROXEN [Suspect]
     Indication: OSTEOARTHRITIS
     Dosage: UNK, 3X/DAY
     Route: 048
     Dates: start: 20100420, end: 20111101
  7. BLINDED NAPROXEN [Suspect]
     Indication: OSTEOARTHRITIS
     Dosage: UNK, 3X/DAY
     Route: 048
     Dates: start: 20100420, end: 20111101
  8. BLINDED PLACEBO [Suspect]
     Indication: OSTEOARTHRITIS
     Dosage: UNK, 3X/DAY
     Route: 048
     Dates: start: 20100420, end: 20111101
  9. BLINDED CELECOXIB [Suspect]
     Indication: RHEUMATOID ARTHRITIS
  10. BLINDED IBUPROFEN [Suspect]
     Indication: RHEUMATOID ARTHRITIS
  11. BLINDED IBUPROFEN [Suspect]
     Indication: RHEUMATOID ARTHRITIS
  12. BLINDED IBUPROFEN [Suspect]
     Indication: RHEUMATOID ARTHRITIS
  13. BLINDED NAPROXEN [Suspect]
     Indication: RHEUMATOID ARTHRITIS
  14. BLINDED NAPROXEN [Suspect]
     Indication: RHEUMATOID ARTHRITIS
  15. BLINDED NAPROXEN [Suspect]
     Indication: RHEUMATOID ARTHRITIS
  16. BLINDED PLACEBO [Suspect]
     Indication: RHEUMATOID ARTHRITIS
  17. METAXALONE [Suspect]
     Indication: MUSCLE SPASMS
     Dosage: 800 MG, TID
     Route: 048
     Dates: start: 20130101, end: 20130901
  18. CYMBALTA [Suspect]
     Indication: ARTHRALGIA
     Dosage: 30 MG, 1X/DAY
     Route: 048
     Dates: start: 20130101, end: 20130901
  19. LORTAB [Suspect]
     Indication: ARTHRALGIA
     Dosage: 7.5 MG, Q6HRS
     Route: 048
     Dates: start: 20130101, end: 20130901
  20. NEXIUM [Concomitant]
     Indication: PROPHYLAXIS
     Dosage: 40 MG, 1X/DAY
     Route: 048
     Dates: start: 20100420, end: 20111101
  21. SYNTHROID [Concomitant]
     Indication: HYPOTHYROIDISM
  22. CELEXA [Concomitant]
     Indication: DEPRESSION
  23. PRAVASTATIN [Concomitant]
     Indication: DYSLIPIDAEMIA
  24. LOZOL [Concomitant]
     Indication: HYPERTENSION

REACTIONS (1)
  - Coma [Recovered/Resolved]
